FAERS Safety Report 11013005 (Version 1)
Quarter: 2015Q2

REPORT INFORMATION
  Report Type: Spontaneous
  Country: IT (occurrence: None)
  Receive Date: 20150409
  Receipt Date: 20150409
  Transmission Date: 20150821
  Serious: Yes (Hospitalization)
  Sender: FDA-Public Use
  Company Number: UCM201504-000217

PATIENT
  Age: 78 Year
  Sex: Female

DRUGS (6)
  1. DOXAZOSIN [Suspect]
     Active Substance: DOXAZOSIN\DOXAZOSIN MESYLATE
     Indication: SECONDARY HYPERTENSION
  2. AMLODIPINE [Suspect]
     Active Substance: AMLODIPINE BESYLATE
     Indication: SECONDARY HYPERTENSION
  3. ATENOLOL (ATENOLOL) [Suspect]
     Active Substance: ATENOLOL
     Indication: SECONDARY HYPERTENSION
  4. RAMIPRIL (RAMIPRIL) [Suspect]
     Active Substance: RAMIPRIL
     Indication: SECONDARY HYPERTENSION
  5. FUROSEMIDE (FUROSEMIDE) [Suspect]
     Active Substance: FUROSEMIDE
     Indication: SECONDARY HYPERTENSION
  6. TELMISARTAN (TELMISARTAN) [Suspect]
     Active Substance: TELMISARTAN
     Indication: SECONDARY HYPERTENSION

REACTIONS (3)
  - Blood creatinine increased [None]
  - Blood pressure increased [None]
  - Headache [None]
